FAERS Safety Report 4866250-5 (Version None)
Quarter: 2005Q4

REPORT INFORMATION
  Report Type: 
  Country: None (occurrence: None)
  Receive Date: 20051220
  Receipt Date: 20051205
  Transmission Date: 20060501
  Serious: Yes (Hospitalization)
  Sender: FDA-Public Use
  Company Number: 8011687

PATIENT
  Age: 56 Year
  Sex: Male

DRUGS (13)
  1. KEPPRA [Suspect]
     Indication: BIPOLAR DISORDER
     Dosage: 500 MG 2/D PO
     Route: 048
     Dates: start: 20041215, end: 20041216
  2. KEPPRA [Suspect]
     Indication: BIPOLAR DISORDER
     Dosage: 1000 MG 2/D PO
     Route: 048
     Dates: start: 20041217, end: 20050104
  3. KEPPRA [Suspect]
     Indication: BIPOLAR DISORDER
     Dosage: 1500 MG 2/D PO
     Route: 048
     Dates: start: 20050105, end: 20050908
  4. KEPPRA [Suspect]
     Indication: BIPOLAR DISORDER
     Dosage: 500MG 3/D PO
     Route: 048
     Dates: start: 20050909, end: 20050912
  5. KEPPRA [Suspect]
     Indication: BIPOLAR DISORDER
     Dosage: 2500 MG PO
     Route: 048
     Dates: start: 20050913, end: 20050929
  6. KEPPRA [Suspect]
     Indication: BIPOLAR DISORDER
     Dosage: 500 MG 3/D PO
     Route: 048
     Dates: start: 20050930, end: 20051103
  7. KEPPRA [Suspect]
     Indication: BIPOLAR DISORDER
     Dosage: 2500 MG/D PO
     Route: 048
     Dates: start: 20051104, end: 20051121
  8. KEPPRA [Suspect]
     Indication: BIPOLAR DISORDER
     Dosage: 500 MG 2/D PO
     Route: 048
     Dates: start: 20051122, end: 20051122
  9. KEPPRA [Suspect]
     Indication: BIPOLAR DISORDER
     Dosage: 250 MG 2/D PO
     Route: 048
     Dates: start: 20051123
  10. SEROQUEL [Suspect]
     Indication: BIPOLAR DISORDER
     Dosage: 50 MG 2/D PO
     Route: 048
     Dates: start: 20050301, end: 20050101
  11. SEROQUEL [Suspect]
     Dosage: 125 MG PO
     Route: 048
     Dates: start: 20050101, end: 20050929
  12. SEROQUEL [Suspect]
     Indication: BIPOLAR DISORDER
     Dosage: 100 MG/D PO
     Route: 048
     Dates: start: 20050930
  13. LORAZEPAM [Concomitant]

REACTIONS (6)
  - ABNORMAL BEHAVIOUR [None]
  - BIPOLAR DISORDER [None]
  - BLOOD ALKALINE PHOSPHATASE INCREASED [None]
  - DELUSION OF GRANDEUR [None]
  - DISINHIBITION [None]
  - HEPATIC ENZYME INCREASED [None]
